FAERS Safety Report 12837696 (Version 1)
Quarter: 2016Q4

REPORT INFORMATION
  Report Type: Report from Study
  Country: FR (occurrence: FR)
  Receive Date: 20161012
  Receipt Date: 20161012
  Transmission Date: 20170207
  Serious: Yes (Hospitalization)
  Sender: FDA-Public Use
  Company Number: FR-ROCHE-1508387

PATIENT
  Age: 53 Year
  Sex: Male
  Weight: 80 kg

DRUGS (11)
  1. RITUXIMAB [Suspect]
     Active Substance: RITUXIMAB
     Route: 041
     Dates: start: 20131104, end: 20131104
  2. DIFFU K [Concomitant]
     Active Substance: POTASSIUM CHLORIDE
     Route: 065
  3. SEROPLEX [Concomitant]
     Active Substance: ESCITALOPRAM OXALATE
     Route: 065
  4. RITUXIMAB [Suspect]
     Active Substance: RITUXIMAB
     Indication: ANTI-NEUTROPHIL CYTOPLASMIC ANTIBODY POSITIVE VASCULITIS
     Route: 041
     Dates: start: 20131022, end: 20131022
  5. CORTANCYL [Concomitant]
     Active Substance: PREDNISONE
     Route: 048
  6. CORTANCYL [Concomitant]
     Active Substance: PREDNISONE
     Route: 065
  7. DERMOVAL (FRANCE) [Concomitant]
     Dosage: 1 APPLICATION
     Route: 065
  8. SORIATANE [Concomitant]
     Active Substance: ACITRETIN
     Route: 065
  9. RITUXIMAB [Suspect]
     Active Substance: RITUXIMAB
     Route: 041
     Dates: start: 20140602, end: 20140602
  10. PARACETAMOL [Concomitant]
     Active Substance: ACETAMINOPHEN
     Route: 065
  11. BETNEVAL [Concomitant]
     Active Substance: BETAMETHASONE VALERATE
     Dosage: 1 APPLICATION
     Route: 065

REACTIONS (4)
  - Temporomandibular joint syndrome [Recovered/Resolved]
  - Back pain [Recovered/Resolved]
  - Diaphragmatic paralysis [Not Recovered/Not Resolved]
  - Neck pain [Recovered/Resolved]

NARRATIVE: CASE EVENT DATE: 20140331
